FAERS Safety Report 7962926-1 (Version None)
Quarter: 2011Q4

REPORT INFORMATION
  Report Type: 
  Country: None (occurrence: None)
  Receive Date: 20111207
  Receipt Date: 20111128
  Transmission Date: 20120403
  Serious: Yes (Hospitalization)
  Sender: FDA-Public Use
  Company Number: FR-ASTRAZENECA-2011SE69363

PATIENT
  Age: 32887 Day
  Sex: Female

DRUGS (15)
  1. LAMICTAL [Suspect]
     Indication: CONVULSION
     Route: 048
     Dates: start: 20111004, end: 20111012
  2. BIMATOPROST AND TIMOLOL MALEATE [Concomitant]
  3. NEXIUM [Suspect]
     Indication: PROPHYLAXIS
     Route: 048
     Dates: end: 20111020
  4. ASPIRIN [Concomitant]
  5. LASIX [Suspect]
     Indication: OEDEMA PERIPHERAL
     Route: 048
  6. ALDACTONE [Suspect]
     Indication: OEDEMA PERIPHERAL
     Route: 048
     Dates: start: 20101101
  7. LAMICTAL [Suspect]
     Route: 048
     Dates: start: 20111103
  8. VITAMIN A [Concomitant]
  9. ARTIFICIAL TEAR [Concomitant]
  10. MIANSERINE [Concomitant]
  11. LOVENOX [Concomitant]
  12. ACETAMINOPHEN AND TRAMADOL HCL [Concomitant]
     Dates: end: 20111025
  13. JELONET [Concomitant]
  14. BISOPROLOL FUMARATE [Concomitant]
  15. AZOPT [Concomitant]

REACTIONS (1)
  - PEMPHIGOID [None]
